FAERS Safety Report 14928727 (Version 1)
Quarter: 2018Q2

REPORT INFORMATION
  Report Type: Spontaneous
  Country: FR (occurrence: FR)
  Receive Date: 20180523
  Receipt Date: 20180523
  Transmission Date: 20180711
  Serious: Yes (Hospitalization)
  Sender: FDA-Public Use
  Company Number: FR-JNJFOC-20180526786

PATIENT
  Age: 48 Year
  Sex: Female

DRUGS (5)
  1. HALDOL [Suspect]
     Active Substance: HALOPERIDOL
     Indication: DRUG ADMINISTRATION ERROR
     Route: 048
     Dates: start: 20180425, end: 20180425
  2. PAROXETINE. [Suspect]
     Active Substance: PAROXETINE
     Indication: DRUG ADMINISTRATION ERROR
     Route: 048
     Dates: start: 20180425, end: 20180425
  3. CHLORMADINONE [Suspect]
     Active Substance: CHLORMADINONE
     Indication: DRUG ADMINISTRATION ERROR
     Route: 048
     Dates: start: 20180425, end: 20180425
  4. TERCIAN [Suspect]
     Active Substance: CYAMEMAZINE
     Indication: DRUG ADMINISTRATION ERROR
     Route: 048
     Dates: start: 20180425, end: 20180425
  5. LEPTICUR [Suspect]
     Active Substance: TROPATEPINE HYDROCHLORIDE
     Indication: DRUG ADMINISTRATION ERROR
     Route: 048
     Dates: start: 20180425, end: 20180425

REACTIONS (2)
  - Somnolence [Recovered/Resolved]
  - Drug administration error [Unknown]

NARRATIVE: CASE EVENT DATE: 20180425
